FAERS Safety Report 6255196-6 (Version None)
Quarter: 2009Q3

REPORT INFORMATION
  Report Type: 
  Country: None (occurrence: None)
  Receive Date: 20090702
  Receipt Date: 20090223
  Transmission Date: 20100115
  Serious: No
  Sender: FDA-Public Use
  Company Number: US-BAYER-200914625NA

PATIENT
  Age: 56 Year
  Sex: Male

DRUGS (2)
  1. ULTRAVIST 150 [Suspect]
     Indication: COMPUTERISED TOMOGRAM THORAX
     Dosage: TOTAL DAILY DOSE: 100 ML
     Route: 042
     Dates: start: 20090220, end: 20090220
  2. UNKNOWN ORAL CONTRAST [Concomitant]
     Route: 048

REACTIONS (2)
  - RASH [None]
  - URTICARIA [None]
